FAERS Safety Report 5261289-2 (Version None)
Quarter: 2007Q1

REPORT INFORMATION
  Report Type: 
  Country: None (occurrence: None)
  Receive Date: 20070309
  Receipt Date: 20070226
  Transmission Date: 20070707
  Serious: Yes (Hospitalization)
  Sender: FDA-Public Use
  Company Number: US-PFIZER INC-2007017803

PATIENT
  Sex: Female

DRUGS (1)
  1. DETROL LA [Suspect]
     Route: 048

REACTIONS (4)
  - DIZZINESS [None]
  - FALL [None]
  - JOINT INJURY [None]
  - LOSS OF CONSCIOUSNESS [None]
